FAERS Safety Report 5946945-2 (Version None)
Quarter: 2008Q4

REPORT INFORMATION
  Report Type: 
  Country: None (occurrence: None)
  Receive Date: 20081107
  Receipt Date: 20081107
  Transmission Date: 20090506
  Serious: No
  Sender: FDA-Public Use
  Company Number: None

PATIENT
  Age: 48 Year
  Sex: Male
  Weight: 98.88 kg

DRUGS (1)
  1. CLONAZEPAM [Suspect]
     Dosage: MG PO
     Route: 048

REACTIONS (3)
  - CONFUSIONAL STATE [None]
  - OVERDOSE [None]
  - SOMNOLENCE [None]
